FAERS Safety Report 4806700-3 (Version None)
Quarter: 2005Q4

REPORT INFORMATION
  Report Type: 
  Country: None (occurrence: None)
  Receive Date: 20051019
  Receipt Date: 20051003
  Transmission Date: 20060501
  Serious: Yes (Other)
  Sender: FDA-Public Use
  Company Number: FR_050606621

PATIENT
  Age: 69 Year
  Sex: Female

DRUGS (4)
  1. FORTEO [Suspect]
     Indication: OSTEOPOROSIS
     Dosage: 20 UG DAY
     Dates: start: 20050411, end: 20050524
  2. THEOPHYLLINE [Concomitant]
  3. KARDEGIC (ACETYLSALICYLATE LYSINE) [Concomitant]
  4. FUROSEMIDE [Concomitant]

REACTIONS (3)
  - CONDITION AGGRAVATED [None]
  - HYPERCALCAEMIA [None]
  - HYPERPARATHYROIDISM [None]
